FAERS Safety Report 7244143-6 (Version None)
Quarter: 2011Q1

REPORT INFORMATION
  Report Type: 
  Country: None (occurrence: None)
  Receive Date: 20110119
  Receipt Date: 20110119
  Transmission Date: 20110831
  Serious: Yes (Other)
  Sender: FDA-Public Use
  Company Number: None

PATIENT
  Age: 68 Year
  Sex: Male
  Weight: 113.3993 kg

DRUGS (1)
  1. GENOTROPIN [Suspect]
     Dosage: .02 4 TIMES A WEEK OTHER, .03 3 TIMES A WEEK OTHER
     Route: 050

REACTIONS (2)
  - INCORRECT DOSE ADMINISTERED [None]
  - PRODUCT PACKAGING ISSUE [None]
